APPROVED DRUG PRODUCT: METHOCARBAMOL
Active Ingredient: METHOCARBAMOL
Strength: 100MG/ML
Dosage Form/Route: INJECTABLE;INJECTION
Application: A086459 | Product #001
Applicant: DR REDDYS LABORATORIES LTD
Approved: Approved Prior to Jan 1, 1982 | RLD: No | RS: No | Type: DISCN